FAERS Safety Report 9484797 (Version 1)
Quarter: 2013Q3

REPORT INFORMATION
  Report Type: Report from Study
  Country: AT (occurrence: AT)
  Receive Date: 20130828
  Receipt Date: 20130828
  Transmission Date: 20140515
  Serious: Yes (Death, Hospitalization)
  Sender: FDA-Public Use
  Company Number: AT-ABBOTT-13P-009-1139134-00

PATIENT
  Age: 69 Year
  Sex: Female
  Weight: 92 kg

DRUGS (2)
  1. ZEMPLAR [Suspect]
     Indication: HYPERPARATHYROIDISM SECONDARY
     Route: 048
     Dates: start: 20120518
  2. RENVELA [Concomitant]
     Indication: PRODUCT USED FOR UNKNOWN INDICATION
     Dosage: 0-1-1
     Route: 048
     Dates: start: 20120706

REACTIONS (2)
  - Cardiac arrest [Fatal]
  - Hospitalisation [Unknown]
